FAERS Safety Report 6722898-4 (Version None)
Quarter: 2010Q2

REPORT INFORMATION
  Report Type: 
  Country: None (occurrence: None)
  Receive Date: 20100511
  Receipt Date: 20100428
  Transmission Date: 20101027
  Serious: Yes (Death)
  Sender: FDA-Public Use
  Company Number: AXC-2010-000119

PATIENT
  Age: 1 Week

DRUGS (8)
  1. SUCRALFATE [Suspect]
     Indication: DRUG EXPOSURE DURING PREGNANCY
     Dosage: TRANSPLACENTAL
     Route: 064
  2. TOCILIZUMAB [Suspect]
     Indication: DRUG EXPOSURE DURING PREGNANCY
     Dosage: TRANSPLACENTAL
     Route: 064
  3. MEDROL [Suspect]
     Indication: DRUG EXPOSURE DURING PREGNANCY
     Dosage: TRANSPLACENTAL
     Route: 064
  4. ISCOTIN /00030201/ (ISONIZID) [Suspect]
     Indication: DRUG EXPOSURE DURING PREGNANCY
     Route: 064
  5. PYDOXAL (PYRIDOXAL PHOSPHATE) [Suspect]
     Indication: DRUG EXPOSURE DURING PREGNANCY
  6. ASPARA-CA (ASPARTATE CALCIUM) [Suspect]
     Indication: DRUG EXPOSURE DURING PREGNANCY
     Route: 064
  7. DEPAS (ETIZOLAM) [Suspect]
     Indication: DRUG EXPOSURE DURING PREGNANCY
     Route: 064
  8. ACETAMINOPHEN [Suspect]
     Indication: DRUG EXPOSURE DURING PREGNANCY
     Route: 064

REACTIONS (2)
  - DEATH NEONATAL [None]
  - MATERNAL DRUGS AFFECTING FOETUS [None]
